FAERS Safety Report 8547758-8 (Version None)
Quarter: 2012Q3

REPORT INFORMATION
  Report Type: 
  Country: None (occurrence: None)
  Receive Date: 20120727
  Receipt Date: 20120302
  Transmission Date: 20120928
  Serious: Yes (Other)
  Sender: FDA-Public Use
  Company Number: US-ASTRAZENECA-2011SE76264

PATIENT
  Sex: Female

DRUGS (3)
  1. SEROQUEL [Suspect]
     Route: 048
  2. SEROQUEL [Suspect]
     Route: 048
  3. SEROQUEL [Suspect]
     Indication: BIPOLAR DISORDER
     Route: 048
     Dates: start: 20040101

REACTIONS (10)
  - INSOMNIA [None]
  - MANIA [None]
  - SOMNOLENCE [None]
  - MALAISE [None]
  - DRUG DOSE OMISSION [None]
  - CONVULSION [None]
  - NIGHTMARE [None]
  - HEADACHE [None]
  - MULTIPLE SCLEROSIS [None]
  - APHAGIA [None]
